FAERS Safety Report 19990385 (Version 1)
Quarter: 2021Q4

REPORT INFORMATION
  Report Type: Spontaneous
  Country: US (occurrence: US)
  Receive Date: 20211022
  Receipt Date: 20211022
  Transmission Date: 20220304
  Serious: Yes (Disabling)
  Sender: FDA-Public Use
  Company Number: None

PATIENT
  Age: 72 Year
  Sex: Female
  Weight: 63 kg

DRUGS (1)
  1. LAMOTRIGINE [Suspect]
     Active Substance: LAMOTRIGINE
     Indication: Partial seizures
     Dosage: ?          QUANTITY:90 TABLET(S);
     Route: 048
     Dates: start: 20211001

REACTIONS (2)
  - Product quality issue [None]
  - Symptom recurrence [None]

NARRATIVE: CASE EVENT DATE: 20211022
